FAERS Safety Report 4535158-7 (Version None)
Quarter: 2004Q4

REPORT INFORMATION
  Report Type: 
  Country: None (occurrence: None)
  Receive Date: 20041222
  Receipt Date: 20041220
  Transmission Date: 20050328
  Serious: Yes (Other)
  Sender: FDA-Public Use
  Company Number: CA-MERCK-0412CAN00131

PATIENT
  Sex: Male

DRUGS (3)
  1. VIOXX [Suspect]
     Indication: ARTHRITIS
     Route: 048
  2. VIOXX [Suspect]
     Route: 048
  3. CLONAZEPAM [Concomitant]
     Route: 065

REACTIONS (5)
  - CONVULSION [None]
  - GASTRIC HAEMORRHAGE [None]
  - KIDNEY ENLARGEMENT [None]
  - MYOCARDIAL INFARCTION [None]
  - RENAL PAIN [None]
